FAERS Safety Report 20186107 (Version 1)
Quarter: 2021Q4

REPORT INFORMATION
  Report Type: Report from Study
  Country: AT (occurrence: AT)
  Receive Date: 20211215
  Receipt Date: 20211215
  Transmission Date: 20220303
  Serious: Yes (Other)
  Sender: FDA-Public Use
  Company Number: AT-CELLTRION INC.-2021AT016646

PATIENT

DRUGS (12)
  1. TRASTUZUMAB [Suspect]
     Active Substance: TRASTUZUMAB
     Indication: HER2 positive breast cancer
     Dosage: MOST RECENT DOSE PRIOR TO THE EVENT: 19/MAR/2020
     Route: 041
     Dates: start: 20181122
  2. ATEZOLIZUMAB [Suspect]
     Active Substance: ATEZOLIZUMAB
     Indication: HER2 positive breast cancer
     Dosage: RECENT DOSE ON 19/NOV/2020
     Route: 041
     Dates: start: 20200604
  3. VINORELBINE [Suspect]
     Active Substance: VINORELBINE TARTRATE
     Indication: HER2 positive breast cancer
     Dosage: RECENT DOSE ON 30/JAN/2020
     Route: 042
     Dates: start: 20181122
  4. PACLITAXEL [Suspect]
     Active Substance: PACLITAXEL
     Indication: HER2 positive breast cancer
     Dosage: RECENT DOSE ON 05/NOV/2020
     Route: 042
     Dates: start: 20200604
  5. PERTUZUMAB [Suspect]
     Active Substance: PERTUZUMAB
     Indication: HER2 positive breast cancer
     Dosage: RECENT DOSE ON 19/MAR/2020
     Route: 042
     Dates: start: 20181122
  6. ENOXAPARIN SODIUM [Concomitant]
     Active Substance: ENOXAPARIN SODIUM
     Dosage: ONGOING = CHECKED
     Dates: start: 20190425
  7. ENTEROBENE [Concomitant]
     Dosage: ONGOING = CHECKED
     Dates: start: 20190425
  8. PANTOPRAZOLE [Concomitant]
     Active Substance: PANTOPRAZOLE
     Dosage: ONGOING = NOT CHECKED
     Dates: start: 20200227
  9. EUTHYROX [Concomitant]
     Active Substance: LEVOTHYROXINE SODIUM
     Dosage: ONGOING = NOT CHECKED
     Dates: start: 20210211, end: 20210521
  10. RILMENIDINE [Concomitant]
     Active Substance: RILMENIDINE
     Dosage: ONGOING = CHECKED
  11. DICLOFENAC SODIUM [Concomitant]
     Active Substance: DICLOFENAC SODIUM
     Dosage: ONGOING = CHECKED
     Dates: start: 20170725
  12. ZOFRAN [Concomitant]
     Active Substance: ONDANSETRON HYDROCHLORIDE
     Dosage: ONGOING = CHECKED
     Dates: start: 20190425

REACTIONS (1)
  - Hypothyroidism [Not Recovered/Not Resolved]

NARRATIVE: CASE EVENT DATE: 20210211
